FAERS Safety Report 17811305 (Version 1)
Quarter: 2020Q2

REPORT INFORMATION
  Report Type: Spontaneous
  Country: US (occurrence: US)
  Receive Date: 20200520
  Receipt Date: 20200520
  Transmission Date: 20200714
  Serious: Yes (Other)
  Sender: FDA-Public Use
  Company Number: None

PATIENT
  Age: 65 Year
  Sex: Female
  Weight: 66.6 kg

DRUGS (8)
  1. DEXAMETHASONE 4MG [Concomitant]
     Active Substance: DEXAMETHASONE
  2. LISINOPRIL. [Concomitant]
     Active Substance: LISINOPRIL
  3. TEMOZOLOMIDE. [Suspect]
     Active Substance: TEMOZOLOMIDE
     Indication: BRAIN NEOPLASM MALIGNANT
     Route: 048
     Dates: start: 20200513, end: 20200517
  4. ASPIRIN 81 MG [Concomitant]
     Active Substance: ASPIRIN
  5. HYDROCHLOROTHIAZIE 25MG [Concomitant]
  6. ONDANSETRON 8MG [Concomitant]
     Active Substance: ONDANSETRON
  7. PHENYTOIN 100MG [Concomitant]
     Active Substance: PHENYTOIN
  8. VALPROIC ACID 250MG [Concomitant]

REACTIONS (1)
  - Disease progression [None]

NARRATIVE: CASE EVENT DATE: 20200518
